FAERS Safety Report 21729864 (Version 2)
Quarter: 2023Q1

REPORT INFORMATION
  Report Type: Spontaneous
  Country: US (occurrence: US)
  Receive Date: 20221214
  Receipt Date: 20230111
  Transmission Date: 20230418
  Serious: No
  Sender: FDA-Public Use
  Company Number: US-ALKERMES INC.-ALK-2022-005940

PATIENT
  Age: 19 Year
  Sex: Female

DRUGS (1)
  1. VIVITROL [Suspect]
     Active Substance: NALTREXONE
     Indication: Alcohol abuse
     Dosage: 380 MILLIGRAM, QMO
     Route: 030

REACTIONS (1)
  - Transcranial magnetic stimulation [Unknown]

NARRATIVE: CASE EVENT DATE: 20221122
